FAERS Safety Report 9256297 (Version 1)
Quarter: 2013Q2

REPORT INFORMATION
  Report Type: Spontaneous
  Country: US (occurrence: US)
  Receive Date: 20130425
  Receipt Date: 20130425
  Transmission Date: 20140414
  Serious: No
  Sender: FDA-Public Use
  Company Number: US-AMGEN-USASP2012073030

PATIENT
  Age: 52 Year
  Sex: Female

DRUGS (2)
  1. NEULASTA [Suspect]
     Indication: NEUTROPENIA
     Dosage: UNK
  2. CHEMOTHERAPEUTICS [Concomitant]
     Dosage: UNK

REACTIONS (5)
  - Fall [Unknown]
  - Back pain [Unknown]
  - Neck pain [Unknown]
  - Discomfort [Unknown]
  - Bone pain [Unknown]
